FAERS Safety Report 18094402 (Version 2)
Quarter: 2020Q3

REPORT INFORMATION
  Report Type: Spontaneous
  Country: US (occurrence: US)
  Receive Date: 20200731
  Receipt Date: 20200911
  Transmission Date: 20201103
  Serious: No
  Sender: FDA-Public Use
  Company Number: US-ASTRAZENECA-2020SE95037

PATIENT
  Age: 923 Month
  Sex: Female

DRUGS (2)
  1. QVAR [Concomitant]
     Active Substance: BECLOMETHASONE DIPROPIONATE
     Indication: LUNG DISORDER
     Dosage: TWO TIMES A DAY
     Route: 055
  2. BEVESPI AEROSPHERE [Suspect]
     Active Substance: FORMOTEROL FUMARATE\GLYCOPYRROLATE
     Indication: LUNG DISORDER
     Dosage: 9MCG/4.8MCG 2 PUFFS TWICE DAILY
     Route: 055
     Dates: start: 20200718

REACTIONS (5)
  - Wrong technique in device usage process [Unknown]
  - Intentional device misuse [Recovered/Resolved]
  - Device malfunction [Unknown]
  - Product dose omission issue [Unknown]
  - Body height decreased [Unknown]

NARRATIVE: CASE EVENT DATE: 202007
